FAERS Safety Report 10174277 (Version 1)
Quarter: 2014Q2

REPORT INFORMATION
  Report Type: Spontaneous
  Country: US (occurrence: US)
  Receive Date: 20140515
  Receipt Date: 20140515
  Transmission Date: 20141212
  Serious: Yes (Hospitalization, Other)
  Sender: FDA-Public Use
  Company Number: US-FRI-1000067214

PATIENT
  Age: 72 Year
  Sex: Female

DRUGS (6)
  1. NAMENDA [Suspect]
     Indication: DEMENTIA ALZHEIMER^S TYPE
     Dosage: 20 MG
     Route: 048
     Dates: end: 2014
  2. NAMENDA [Suspect]
     Indication: DEMENTIA ALZHEIMER^S TYPE
     Dosage: 10 MG
     Route: 048
     Dates: start: 2014, end: 20140506
  3. NAMENDA XR [Suspect]
     Indication: DEMENTIA ALZHEIMER^S TYPE
     Dosage: 28 MG
     Route: 048
     Dates: start: 2014
  4. CITALOPRAM [Suspect]
     Indication: DEPRESSION
  5. SEROQUEL [Concomitant]
  6. TRAMADOL [Concomitant]
     Indication: BACK PAIN

REACTIONS (6)
  - Urinary tract infection [Unknown]
  - Intentional overdose [Recovered/Resolved]
  - Diarrhoea [Not Recovered/Not Resolved]
  - Confusional state [Not Recovered/Not Resolved]
  - Somnolence [Not Recovered/Not Resolved]
  - Medication error [Recovered/Resolved]
